FAERS Safety Report 20246146 (Version 5)
Quarter: 2023Q1

REPORT INFORMATION
  Report Type: Spontaneous
  Country: US (occurrence: US)
  Receive Date: 20211229
  Receipt Date: 20230210
  Transmission Date: 20230418
  Serious: Yes (Hospitalization, Other)
  Sender: FDA-Public Use
  Company Number: US-ELI_LILLY_AND_COMPANY-US202112005018

PATIENT
  Age: 79 Year
  Sex: Female

DRUGS (2)
  1. ETESEVIMAB [Suspect]
     Active Substance: ETESEVIMAB
     Indication: COVID-19
     Dosage: UNK, SINGLE
     Route: 042
     Dates: start: 20211130, end: 20211130
  2. BAMLANIVIMAB [Suspect]
     Active Substance: BAMLANIVIMAB
     Indication: COVID-19
     Dosage: UNK, SINGLE
     Route: 042
     Dates: start: 20211130, end: 20211130

REACTIONS (30)
  - Anaemia [Unknown]
  - Gastroenteritis viral [Unknown]
  - Syncope [Unknown]
  - Gastrointestinal pain [Not Recovered/Not Resolved]
  - Feeling cold [Not Recovered/Not Resolved]
  - Swelling face [Unknown]
  - Diarrhoea [Not Recovered/Not Resolved]
  - Cough [Unknown]
  - Abdominal pain upper [Unknown]
  - Dizziness [Recovered/Resolved]
  - Proctalgia [Unknown]
  - Heart rate increased [Not Recovered/Not Resolved]
  - Asthenia [Unknown]
  - Pyrexia [Not Recovered/Not Resolved]
  - Pain [Unknown]
  - Oral pruritus [Not Recovered/Not Resolved]
  - Nasal pruritus [Not Recovered/Not Resolved]
  - Fall [Unknown]
  - Haemorrhoids [Not Recovered/Not Resolved]
  - Rash papular [Not Recovered/Not Resolved]
  - Back pain [Not Recovered/Not Resolved]
  - Back injury [Unknown]
  - Pain [Not Recovered/Not Resolved]
  - Alopecia [Unknown]
  - Pyrexia [Unknown]
  - Hypoxia [Unknown]
  - Dyspnoea [Unknown]
  - Arrhythmia [Unknown]
  - Fatigue [Unknown]
  - Mental status changes [Unknown]

NARRATIVE: CASE EVENT DATE: 20211130
